FAERS Safety Report 23241213 (Version 1)
Quarter: 2023Q4

REPORT INFORMATION
  Report Type: Spontaneous
  Country: GB (occurrence: GB)
  Receive Date: 20231129
  Receipt Date: 20231129
  Transmission Date: 20240109
  Serious: Yes (Hospitalization, Other)
  Sender: FDA-Public Use
  Company Number: GB-AMGEN-GBRSP2023208950

PATIENT
  Age: 76 Year
  Sex: Male

DRUGS (4)
  1. ROMIPLOSTIM [Suspect]
     Active Substance: ROMIPLOSTIM
     Indication: Chronic lymphocytic leukaemia
     Dosage: 1 MICROGRAM PER KILOGRAM, QWK
     Route: 065
  2. HUMAN IMMUNOGLOBULIN G [Concomitant]
     Active Substance: HUMAN IMMUNOGLOBULIN G
     Indication: Thrombocytopenia
     Dosage: 1 GRAM PER KILOGRAM
     Route: 042
  3. DEXAMETHASONE [Concomitant]
     Active Substance: DEXAMETHASONE
     Dosage: 20 MILLIGRAM FOUR DAY COURSE
     Route: 065
  4. OBINUTUZUMAB [Concomitant]
     Active Substance: OBINUTUZUMAB
     Dosage: UNK
     Route: 065

REACTIONS (8)
  - Post procedural haematoma [Unknown]
  - Melaena [Unknown]
  - Extra-axial haemorrhage [Unknown]
  - COVID-19 [Unknown]
  - Haemorrhoidal haemorrhage [Unknown]
  - Gastritis [Unknown]
  - Haemoglobin decreased [Unknown]
  - Off label use [Unknown]
